FAERS Safety Report 25051334 (Version 1)
Quarter: 2025Q1

REPORT INFORMATION
  Report Type: Spontaneous
  Country: US (occurrence: None)
  Receive Date: 20250307
  Receipt Date: 20250307
  Transmission Date: 20250409
  Serious: Yes (Hospitalization, Other)
  Sender: FDA-CTU
  Company Number: None

PATIENT
  Age: 0 Year
  Sex: Male
  Weight: 2.3 kg

DRUGS (2)
  1. FLUOXETINE [Suspect]
     Active Substance: FLUOXETINE HYDROCHLORIDE
     Dates: start: 20210818
  2. METRONIDAZOLE [Suspect]
     Active Substance: METRONIDAZOLE
     Dates: start: 20220121, end: 20220128

REACTIONS (5)
  - Neonatal respiratory failure [None]
  - Premature baby [None]
  - Hyperbilirubinaemia neonatal [None]
  - Premature delivery [None]
  - Foetal exposure during pregnancy [None]

NARRATIVE: CASE EVENT DATE: 20220417
